FAERS Safety Report 5290369-0 (Version None)
Quarter: 2007Q2

REPORT INFORMATION
  Report Type: 
  Country: None (occurrence: None)
  Receive Date: 20070409
  Receipt Date: 20070329
  Transmission Date: 20071010
  Serious: Yes (Death, Other)
  Sender: FDA-Public Use
  Company Number: US-AVENTIS-200712251US

PATIENT
  Sex: Male

DRUGS (2)
  1. LOVENOX [Suspect]
     Dosage: DOSE: UNK
  2. COUMADIN [Concomitant]
     Dosage: DOSE: UNK

REACTIONS (4)
  - DEATH [None]
  - HEPARIN-INDUCED THROMBOCYTOPENIA [None]
  - PERIPHERAL ISCHAEMIA [None]
  - PLATELET COUNT DECREASED [None]
